FAERS Safety Report 14411815 (Version 1)
Quarter: 2018Q1

REPORT INFORMATION
  Report Type: Report from Study
  Country: US (occurrence: US)
  Receive Date: 20180119
  Receipt Date: 20180119
  Transmission Date: 20180509
  Serious: No
  Sender: FDA-Public Use
  Company Number: PHEH2018US001711

PATIENT
  Age: 53 Year
  Sex: Male

DRUGS (1)
  1. COSENTYX [Suspect]
     Active Substance: SECUKINUMAB
     Indication: PSORIATIC ARTHROPATHY
     Dosage: 150 MG, Q4W
     Route: 058
     Dates: start: 20171029, end: 20180111

REACTIONS (4)
  - Cough [Unknown]
  - Ear pain [Unknown]
  - Sinusitis [Unknown]
  - Drug ineffective [Recovering/Resolving]

NARRATIVE: CASE EVENT DATE: 20171105
